FAERS Safety Report 7007512-5 (Version None)
Quarter: 2010Q3

REPORT INFORMATION
  Report Type: 
  Country: None (occurrence: None)
  Receive Date: 20100915
  Receipt Date: 20100908
  Transmission Date: 20110219
  Serious: No
  Sender: FDA-Public Use
  Company Number: WAES 1008USA01939

PATIENT
  Age: 53 Year
  Sex: Female
  Weight: 60.782 kg

DRUGS (3)
  1. CAP VORINOSTAT UNK [Suspect]
     Indication: B-CELL LYMPHOMA
     Dosage: SEE IMAGE
     Route: 048
     Dates: start: 20090528, end: 20090601
  2. HYPOCA [Concomitant]
  3. LIPITOR [Concomitant]

REACTIONS (4)
  - DEEP VEIN THROMBOSIS [None]
  - LYMPHADENOPATHY [None]
  - PULMONARY EMBOLISM [None]
  - VENOUS ANEURYSM [None]
